FAERS Safety Report 7846642-2 (Version None)
Quarter: 2011Q4

REPORT INFORMATION
  Report Type: 
  Country: None (occurrence: None)
  Receive Date: 20111025
  Receipt Date: 20111012
  Transmission Date: 20120403
  Serious: Yes (Other)
  Sender: FDA-Public Use
  Company Number: PHHY2008JP26651

PATIENT
  Sex: Female
  Weight: 50 kg

DRUGS (14)
  1. SIMULECT [Suspect]
     Dosage: 20 MG PER DAY
     Route: 042
     Dates: start: 20070527, end: 20070527
  2. PREDNISOLONE [Concomitant]
     Indication: RENAL TRANSPLANT
     Dosage: 50 MG PER DAY
     Route: 048
     Dates: start: 20070526
  3. PIPERACILLIN SODIUM [Concomitant]
     Indication: INFECTION PROPHYLAXIS
     Dosage: 2 G PER DAY
     Route: 042
     Dates: start: 20070523, end: 20070528
  4. ALBUMIN (HUMAN) [Concomitant]
     Indication: HYPOALBUMINAEMIA
     Dosage: 100 ML PER DAY
     Route: 042
     Dates: start: 20070523, end: 20070525
  5. NEORAL [Suspect]
     Indication: RENAL TRANSPLANT
     Dosage: 260 MG
     Route: 048
     Dates: start: 20070501
  6. MYCOPHENOLATE MOFETIL (CELLCEPT) [Concomitant]
     Indication: RENAL TRANSPLANT
     Dosage: 1500 MG
     Route: 048
     Dates: start: 20070523
  7. SANDIMMUNE [Suspect]
     Indication: RENAL TRANSPLANT
     Dosage: 240 MG PER DAY
     Route: 042
     Dates: start: 20070523, end: 20070529
  8. SOLU-MEDROL [Concomitant]
     Indication: RENAL TRANSPLANT
     Dosage: 625 MG PER DAY
     Route: 042
     Dates: start: 20070523, end: 20070523
  9. SOLU-MEDROL [Concomitant]
     Dosage: 250 MG PER DAY
     Route: 042
     Dates: start: 20070524, end: 20070524
  10. ZANTAC [Concomitant]
     Dosage: 2 DF PER DAY
     Route: 048
     Dates: start: 20070526
  11. ZANTAC [Concomitant]
     Indication: PROPHYLAXIS AGAINST GASTROINTESTINAL ULCER
     Dosage: 2 DF PER DAY
     Route: 042
     Dates: start: 20070523, end: 20070525
  12. VENOGLOBULIN [Concomitant]
     Indication: RENAL TRANSPLANT
     Dosage: 2.5 G PER DAY
     Route: 042
     Dates: start: 20070606, end: 20070610
  13. SIMULECT [Suspect]
     Indication: RENAL TRANSPLANT
     Dosage: 20 MG, PER DAY
     Route: 042
     Dates: start: 20070523, end: 20070523
  14. SOLU-MEDROL [Concomitant]
     Dosage: 125 MG PER DAY
     Route: 042
     Dates: start: 20070525, end: 20070525

REACTIONS (5)
  - ANTIBODY TEST POSITIVE [None]
  - NEPHROPATHY TOXIC [None]
  - BLOOD PRESSURE SYSTOLIC INCREASED [None]
  - KIDNEY TRANSPLANT REJECTION [None]
  - RENAL TUBULAR NECROSIS [None]
